FAERS Safety Report 9993236 (Version 6)
Quarter: 2015Q3

REPORT INFORMATION
  Report Type: Report from Study
  Country: JP (occurrence: JP)
  Receive Date: 20140310
  Receipt Date: 20150810
  Transmission Date: 20151125
  Serious: Yes (Death, Hospitalization, Disabling, Other)
  Sender: FDA-Public Use
  Company Number: JP-009507513-1403JPN003377

PATIENT
  Age: 78 Year
  Sex: Female
  Weight: 74 kg

DRUGS (26)
  1. PEGINTRON [Suspect]
     Active Substance: PEGINTERFERON ALFA-2B
     Dosage: 50 MICROGRAM, QW
     Route: 058
     Dates: start: 20120521, end: 20120521
  2. PEGINTRON [Suspect]
     Active Substance: PEGINTERFERON ALFA-2B
     Dosage: 70 MICROGRAM, QW
     Route: 058
     Dates: start: 20120806, end: 20120806
  3. PEGINTRON [Suspect]
     Active Substance: PEGINTERFERON ALFA-2B
     Dosage: 50 MICROGRAM, QW
     Route: 058
     Dates: start: 20120813, end: 20120820
  4. PEGINTRON [Suspect]
     Active Substance: PEGINTERFERON ALFA-2B
     Dosage: 40 MICROGRAM, QW
     Route: 058
     Dates: start: 20120827, end: 20120827
  5. AMLODIPINE [Concomitant]
     Active Substance: AMLODIPINE BESYLATE
     Indication: HYPERTENSION
     Dosage: 5 MG, QD
     Route: 048
     Dates: start: 1997, end: 20140712
  6. PEGINTRON [Suspect]
     Active Substance: PEGINTERFERON ALFA-2B
     Dosage: 70 MICROGRAM, QW
     Route: 058
     Dates: start: 20120528, end: 20120528
  7. PEGINTRON [Suspect]
     Active Substance: PEGINTERFERON ALFA-2B
     Dosage: 70 MICROGRAM, QW
     Route: 058
     Dates: start: 20120618, end: 20120625
  8. PEGINTRON [Suspect]
     Active Substance: PEGINTERFERON ALFA-2B
     Dosage: 60 MICROGRAM, QW
     Route: 058
     Dates: start: 20121217, end: 20130115
  9. REBETOL [Suspect]
     Active Substance: RIBAVIRIN
     Dosage: 600 MG, QD
     Route: 048
     Dates: start: 20120604, end: 20120617
  10. PEGINTRON [Suspect]
     Active Substance: PEGINTERFERON ALFA-2B
     Dosage: 50 MICROGRAM, QW
     Route: 058
     Dates: start: 20120702, end: 20120709
  11. PEGINTRON [Suspect]
     Active Substance: PEGINTERFERON ALFA-2B
     Dosage: 70 MICROGRAM, QW
     Route: 058
     Dates: start: 20121112, end: 20121210
  12. REBETOL [Suspect]
     Active Substance: RIBAVIRIN
     Indication: HEPATIC CIRRHOSIS
     Dosage: 800 MG, QD
     Route: 048
     Dates: start: 20120514, end: 20120603
  13. REBETOL [Suspect]
     Active Substance: RIBAVIRIN
     Dosage: 400 MG ONCE A DAY AND 600 MG ONCE EVERY OTHER DAY
     Route: 048
     Dates: start: 20120618, end: 20120708
  14. LANZOPRAZOL [Concomitant]
     Active Substance: LANSOPRAZOLE
     Indication: GASTROOESOPHAGEAL REFLUX DISEASE
     Dosage: 15 MG, QD
     Route: 048
     Dates: start: 20120127, end: 20140712
  15. REBETOL [Suspect]
     Active Substance: RIBAVIRIN
     Dosage: 600 MG, QD
     Route: 048
     Dates: start: 20121203, end: 20121209
  16. REBETOL [Suspect]
     Active Substance: RIBAVIRIN
     Dosage: 400 MG ONCE A DAY AND 600 MG ONCE EVERY OTHER DAY
     Route: 048
     Dates: start: 20121210, end: 20130113
  17. PEGINTRON [Suspect]
     Active Substance: PEGINTERFERON ALFA-2B
     Dosage: 40 MICROGRAM, QW
     Route: 058
     Dates: start: 20120717, end: 20120717
  18. PEGINTRON [Suspect]
     Active Substance: PEGINTERFERON ALFA-2B
     Dosage: 70 MICROGRAM, QW
     Route: 058
     Dates: start: 20120723, end: 20120723
  19. PEGINTRON [Suspect]
     Active Substance: PEGINTERFERON ALFA-2B
     Dosage: 60 MICROGRAM, QW
     Route: 058
     Dates: start: 20120903, end: 20121105
  20. REBETOL [Suspect]
     Active Substance: RIBAVIRIN
     Dosage: 400 MG, QD
     Route: 048
     Dates: start: 20120709, end: 20120923
  21. PEGINTRON [Suspect]
     Active Substance: PEGINTERFERON ALFA-2B
     Indication: HEPATIC CIRRHOSIS
     Dosage: 70 MICROGRAM, QW
     Route: 058
     Dates: start: 20120514, end: 20120514
  22. PEGINTRON [Suspect]
     Active Substance: PEGINTERFERON ALFA-2B
     Dosage: 50 MICROGRAM, QW
     Route: 058
     Dates: start: 20120604, end: 20120611
  23. REBETOL [Suspect]
     Active Substance: RIBAVIRIN
     Dosage: 200 MG ONCE A DAY AND 400 MG ONCE EVERY OTHER DAY
     Route: 048
     Dates: start: 20120924, end: 20120930
  24. REBETOL [Suspect]
     Active Substance: RIBAVIRIN
     Dosage: 400 MG ONCE A DAY AND 600 MG ONCE EVERY OTHER DAY
     Route: 048
     Dates: start: 20121119, end: 20121202
  25. PEGINTRON [Suspect]
     Active Substance: PEGINTERFERON ALFA-2B
     Dosage: 50 MICROGRAM, QW
     Route: 058
     Dates: start: 20120730, end: 20120730
  26. REBETOL [Suspect]
     Active Substance: RIBAVIRIN
     Dosage: 400 MG, QD
     Route: 048
     Dates: start: 20121001, end: 20121118

REACTIONS (17)
  - Dementia [Fatal]
  - Back pain [Recovered/Resolved]
  - Depression [Recovered/Resolved]
  - Eczema [Recovered/Resolved]
  - Malaise [Not Recovered/Not Resolved]
  - Platelet count decreased [Unknown]
  - Anti-interferon antibody positive [Unknown]
  - Completed suicide [Fatal]
  - Gastritis [Recovered/Resolved]
  - Headache [Recovered/Resolved]
  - Agranulocytosis [Not Recovered/Not Resolved]
  - Stomatitis [Recovered/Resolved]
  - Bronchitis [Recovered/Resolved]
  - Hepatocellular carcinoma [Not Recovered/Not Resolved]
  - Haemoglobin decreased [Not Recovered/Not Resolved]
  - Insomnia [Not Recovered/Not Resolved]
  - Pyrexia [Recovering/Resolving]

NARRATIVE: CASE EVENT DATE: 20120514
